FAERS Safety Report 6068548-4 (Version None)
Quarter: 2009Q1

REPORT INFORMATION
  Report Type: 
  Country: None (occurrence: None)
  Receive Date: 20090206
  Receipt Date: 20090129
  Transmission Date: 20090719
  Serious: Yes (Other)
  Sender: FDA-Public Use
  Company Number: US-JNJCH-2009002761

PATIENT
  Age: 9 Year
  Sex: Female
  Weight: 32.7 kg

DRUGS (1)
  1. LISTERINE AGENT COOL BLUE GLACIER MINT [Suspect]
     Indication: DENTAL DISORDER PROPHYLAXIS
     Dosage: TEXT:UNSPECIFIED ONCE DAILY
     Route: 048
     Dates: start: 20090128, end: 20090129

REACTIONS (6)
  - ERYTHEMA [None]
  - HYPERSENSITIVITY [None]
  - LIP SWELLING [None]
  - MEDICATION RESIDUE [None]
  - PHARYNGEAL OEDEMA [None]
  - STOMATITIS [None]
